FAERS Safety Report 21098867 (Version 1)
Quarter: 2022Q3

REPORT INFORMATION
  Report Type: Spontaneous
  Country: US (occurrence: None)
  Receive Date: 20220718
  Receipt Date: 20220718
  Transmission Date: 20221026
  Serious: Yes (Disabling)
  Sender: FDA-Public Use
  Company Number: None

PATIENT
  Age: 80 Year
  Sex: Female
  Weight: 87.75 kg

DRUGS (5)
  1. HYDROCHLOROTHIAZIDE\LOSARTAN [Suspect]
     Active Substance: HYDROCHLOROTHIAZIDE\LOSARTAN
     Indication: Blood pressure increased
     Dosage: FREQUENCY : DAILY;?
     Route: 048
  2. TAMOXIFEN [Concomitant]
     Active Substance: TAMOXIFEN
  3. ASPIRIN [Concomitant]
     Active Substance: ASPIRIN
  4. VITAMINS [Concomitant]
     Active Substance: VITAMINS
  5. FIBER [Concomitant]
     Active Substance: PSYLLIUM HUSK

REACTIONS (17)
  - Weight increased [None]
  - Fatigue [None]
  - Asthenia [None]
  - Dizziness [None]
  - Loss of consciousness [None]
  - Loss of consciousness [None]
  - Dry mouth [None]
  - Back pain [None]
  - Cough [None]
  - Wheezing [None]
  - Pollakiuria [None]
  - Joint swelling [None]
  - Blood glucose increased [None]
  - Swelling face [None]
  - Head injury [None]
  - Ear disorder [None]
  - Neoplasm skin [None]

NARRATIVE: CASE EVENT DATE: 20200718
